FAERS Safety Report 12922923 (Version 2)
Quarter: 2016Q4

REPORT INFORMATION
  Report Type: Spontaneous
  Country: US (occurrence: US)
  Receive Date: 20161109
  Receipt Date: 20161130
  Transmission Date: 20170207
  Serious: No
  Sender: FDA-Public Use
  Company Number: ALCN2016US007552

PATIENT
  Age: 84 Year
  Sex: Male
  Weight: 88.44 kg

DRUGS (6)
  1. BABY ASPIRIN [Concomitant]
     Active Substance: ASPIRIN
     Indication: PRODUCT USED FOR UNKNOWN INDICATION
     Dosage: (DOES NOT TAKE IT EVERY DAY)
     Route: 048
  2. TIMOLOL. [Suspect]
     Active Substance: TIMOLOL
     Indication: INTRAOCULAR PRESSURE INCREASED
     Dosage: 1 GTT, QD (MORNING)
     Route: 047
  3. TIMOLOL. [Suspect]
     Active Substance: TIMOLOL
     Indication: PROPHYLAXIS
  4. SENOKOT [Concomitant]
     Active Substance: SENNOSIDES
     Indication: CONSTIPATION
     Dosage: UNK
     Route: 048
  5. LATANOPROST. [Suspect]
     Active Substance: LATANOPROST
     Indication: INTRAOCULAR PRESSURE INCREASED
     Dosage: 1 GTT, QD (AT NIGHT)
     Route: 047
  6. LATANOPROST. [Suspect]
     Active Substance: LATANOPROST
     Indication: PROPHYLAXIS

REACTIONS (2)
  - Product quality issue [Unknown]
  - Inappropriate schedule of drug administration [Not Recovered/Not Resolved]
